FAERS Safety Report 5104343-8 (Version None)
Quarter: 2006Q3

REPORT INFORMATION
  Report Type: 
  Country: None (occurrence: None)
  Receive Date: 20060912
  Receipt Date: 20060912
  Transmission Date: 20061208
  Serious: No
  Sender: FDA-Public Use
  Company Number: None

PATIENT
  Age: 51 Year
  Sex: Male
  Weight: 90.1751 kg

DRUGS (6)
  1. ZYVOX [Suspect]
     Indication: FRACTURE NONUNION
     Dosage: 600 MG BID PO
     Route: 048
  2. ZYVOX [Suspect]
     Indication: INFECTION
     Dosage: 600 MG BID PO
     Route: 048
  3. AUGMENTIN [Concomitant]
  4. AVELOX [Concomitant]
  5. OXYCODONE HCL [Concomitant]
  6. CALCIUM GLUCONATE [Concomitant]

REACTIONS (6)
  - AURA [None]
  - CYANOPSIA [None]
  - HYPOAESTHESIA [None]
  - PARAESTHESIA [None]
  - PHOTOPHOBIA [None]
  - VISUAL ACUITY REDUCED [None]
